FAERS Safety Report 24573465 (Version 1)
Quarter: 2024Q4

REPORT INFORMATION
  Report Type: Spontaneous
  Country: NL (occurrence: NL)
  Receive Date: 20241102
  Receipt Date: 20241102
  Transmission Date: 20250115
  Serious: Yes (Hospitalization)
  Sender: AUROBINDO
  Company Number: NL-LRB-01010086

PATIENT
  Age: 70 Year
  Sex: Male
  Weight: 94 kg

DRUGS (3)
  1. LEVOFLOXACIN [Suspect]
     Active Substance: LEVOFLOXACIN
     Indication: Orchitis
     Dosage: 1 DOSAGE FORM (500 MILLIGRAM)
     Route: 065
     Dates: start: 20240916
  2. AMLODIPINE [Suspect]
     Active Substance: AMLODIPINE BESYLATE
     Indication: Hypertension
     Dosage: 10 MILLIGRAM, ONCE A DAY
     Route: 065
     Dates: start: 20240612
  3. VASELINE CETOMACROGOL CREAM [Concomitant]
     Indication: Product used for unknown indication
     Dosage: UNK
     Route: 065

REACTIONS (6)
  - Skin burning sensation [Not Recovered/Not Resolved]
  - Feeling hot [Not Recovered/Not Resolved]
  - Pruritus [Not Recovered/Not Resolved]
  - Cough [Not Recovered/Not Resolved]
  - Dry skin [Not Recovered/Not Resolved]
  - Dyspnoea [Not Recovered/Not Resolved]
